FAERS Safety Report 21335718 (Version 2)
Quarter: 2022Q3

REPORT INFORMATION
  Report Type: Spontaneous
  Country: US (occurrence: US)
  Receive Date: 20220915
  Receipt Date: 20220930
  Transmission Date: 20221026
  Serious: Yes (Death, Hospitalization)
  Sender: FDA-Public Use
  Company Number: US-TEVA-2022-US-2071768

PATIENT
  Age: 39 Year
  Sex: Male

DRUGS (3)
  1. METFORMIN [Suspect]
     Active Substance: METFORMIN HYDROCHLORIDE
     Indication: Type 2 diabetes mellitus
     Dosage: 10MCG/ML
     Route: 065
  2. OXACILLIN [Concomitant]
     Active Substance: OXACILLIN SODIUM
     Indication: Staphylococcal bacteraemia
     Route: 042
  3. NAC [Concomitant]
     Indication: Evidence based treatment
     Route: 065

REACTIONS (7)
  - Lactic acidosis [Fatal]
  - Renal failure [Fatal]
  - Overdose [Fatal]
  - Hypotension [Fatal]
  - Jaundice [Unknown]
  - Hypervolaemia [Unknown]
  - Hypoxia [Unknown]
